FAERS Safety Report 9547045 (Version 1)
Quarter: 2013Q3

REPORT INFORMATION
  Report Type: Spontaneous
  Country: US (occurrence: None)
  Receive Date: 20130920
  Receipt Date: 20130920
  Transmission Date: 20140515
  Serious: Yes (Other)
  Sender: FDA-Public Use
  Company Number: 001597307A

PATIENT
  Age: 46 Year
  Sex: Female

DRUGS (2)
  1. MEANINGFUL BEAUTY ANTIOXIDANT DAY CREME WITH SPF 20 [Suspect]
     Dosage: TWICE DAILY DERMAL
     Dates: start: 20130801, end: 20130830
  2. SKIN BRIGHTENING DECOLLETE AND NECK TREATMENT SPF 15 [Suspect]
     Dosage: TWICW DAILY DERMAL
     Dates: start: 20130801, end: 20130830

REACTIONS (4)
  - Urticaria [None]
  - Vision blurred [None]
  - Dyspnoea [None]
  - Swelling face [None]
